FAERS Safety Report 15942805 (Version 1)
Quarter: 2019Q1

REPORT INFORMATION
  Report Type: Spontaneous
  Country: GB (occurrence: GB)
  Receive Date: 20190209
  Receipt Date: 20190209
  Transmission Date: 20190417
  Serious: Yes (Hospitalization)
  Sender: FDA-Public Use
  Company Number: GB-AMGEN-GBRNI2019017534

PATIENT
  Age: 64 Year
  Sex: Female

DRUGS (12)
  1. TRASTUZUMAB. [Suspect]
     Active Substance: TRASTUZUMAB
     Dosage: 399 MG (CYCLE 1), Q3WK
     Route: 042
     Dates: start: 20161026, end: 20161026
  2. DOCETAXEL. [Suspect]
     Active Substance: DOCETAXEL
     Indication: BREAST CANCER
     Dosage: 75 MG (CYCLE 7), Q3WK
     Route: 042
     Dates: start: 20160706, end: 20161026
  3. PERTUZUMAB. [Suspect]
     Active Substance: PERTUZUMAB
     Dosage: 420 MG (CYCLE 5), Q3WK
     Route: 042
     Dates: start: 20161026
  4. DOCETAXEL. [Suspect]
     Active Substance: DOCETAXEL
     Dosage: 130 MG (CYCLE 1), Q3WK
     Route: 042
     Dates: start: 20160524, end: 20160524
  5. XGEVA [Suspect]
     Active Substance: DENOSUMAB
     Indication: METASTASES TO BONE
     Dosage: 120 MG, UNK
     Route: 042
  6. DOCETAXEL. [Suspect]
     Active Substance: DOCETAXEL
     Dosage: 100 MG (CYCLE 1), Q3WK
     Route: 042
     Dates: start: 20160615, end: 20160615
  7. PERTUZUMAB. [Suspect]
     Active Substance: PERTUZUMAB
     Indication: BREAST CANCER
     Dosage: 420 MG, Q3WK
     Route: 042
     Dates: start: 20160615, end: 20160914
  8. ADCAL D3 [Concomitant]
     Active Substance: CALCIUM CARBONATE\CHOLECALCIFEROL
     Dosage: 10 MCG, UNK
     Route: 048
  9. PERTUZUMAB. [Suspect]
     Active Substance: PERTUZUMAB
     Dosage: 840 MG (CYCLE 1), Q3WK
     Route: 042
     Dates: start: 20160523, end: 20160523
  10. TRASTUZUMAB. [Suspect]
     Active Substance: TRASTUZUMAB
     Indication: PRODUCT USED FOR UNKNOWN INDICATION
     Dosage: 399 MG (CYCLE 5), Q3WK
     Route: 042
     Dates: start: 20160615, end: 20160914
  11. TRASTUZUMAB. [Suspect]
     Active Substance: TRASTUZUMAB
     Dosage: 378 MG, Q3WK
     Route: 042
     Dates: start: 20161116
  12. TRASTUZUMAB. [Suspect]
     Active Substance: TRASTUZUMAB
     Dosage: 525 MG (CYCLE 1), Q3WK
     Route: 042
     Dates: start: 20160524, end: 20160524

REACTIONS (2)
  - Sepsis [Recovered/Resolved]
  - Off label use [Unknown]

NARRATIVE: CASE EVENT DATE: 20181127
